FAERS Safety Report 14495057 (Version 6)
Quarter: 2018Q1

REPORT INFORMATION
  Report Type: Report from Study
  Country: TR (occurrence: TR)
  Receive Date: 20180206
  Receipt Date: 20180326
  Transmission Date: 20180509
  Serious: Yes (Hospitalization)
  Sender: FDA-Public Use
  Company Number: TR-EMD SERONO-E2B_90017647

PATIENT
  Age: 57 Year
  Sex: Male
  Weight: 123 kg

DRUGS (4)
  1. AVIL                               /00085102/ [Concomitant]
     Dates: start: 20180123, end: 20180123
  2. PAROL [Concomitant]
     Active Substance: ACETAMINOPHEN
     Indication: PREMEDICATION
     Route: 048
     Dates: start: 20171229, end: 20171229
  3. AVIL                               /00085102/ [Concomitant]
     Indication: PREMEDICATION
     Dates: start: 20171229, end: 20171229
  4. AVELUMAB [Suspect]
     Active Substance: AVELUMAB
     Indication: NON-SMALL CELL LUNG CANCER
     Route: 042
     Dates: start: 20171229, end: 20180123

REACTIONS (2)
  - Infusion related reaction [Recovered/Resolved]
  - Cytokine release syndrome [Recovered/Resolved]

NARRATIVE: CASE EVENT DATE: 20180123
